FAERS Safety Report 6206279-8 (Version None)
Quarter: 2009Q2

REPORT INFORMATION
  Report Type: 
  Country: None (occurrence: None)
  Receive Date: 20090528
  Receipt Date: 20090520
  Transmission Date: 20091009
  Serious: Yes (Other)
  Sender: FDA-Public Use
  Company Number: GB-ROCHE-633913

PATIENT
  Sex: Female
  Weight: 133 kg

DRUGS (1)
  1. ORLISTAT [Suspect]
     Indication: OBESITY
     Route: 048
     Dates: start: 20081022, end: 20090401

REACTIONS (2)
  - CHOLELITHIASIS [None]
  - PANCREATITIS [None]
